FAERS Safety Report 15327675 (Version 2)
Quarter: 2018Q4

REPORT INFORMATION
  Report Type: Spontaneous
  Country: CA (occurrence: CA)
  Receive Date: 20180828
  Receipt Date: 20181130
  Transmission Date: 20190204
  Serious: Yes (Other)
  Sender: FDA-Public Use
  Company Number: CA-SA-2018SA145179

PATIENT
  Age: 57 Year
  Sex: Female
  Weight: 51 kg

DRUGS (3)
  1. ENBREL [Suspect]
     Active Substance: ETANERCEPT
     Indication: PRODUCT USED FOR UNKNOWN INDICATION
     Dosage: 25 MG, QOW
     Dates: start: 20070101
  2. METHOTREXATE. [Suspect]
     Active Substance: METHOTREXATE
     Indication: PRODUCT USED FOR UNKNOWN INDICATION
  3. ARAVA [Suspect]
     Active Substance: LEFLUNOMIDE
     Indication: RHEUMATOID ARTHRITIS
     Dosage: 10 MG, QD

REACTIONS (12)
  - Rheumatoid arthritis [Unknown]
  - Osteoporosis [Unknown]
  - Adverse event [Unknown]
  - Cervical spinal stenosis [Unknown]
  - Infection [Unknown]
  - Nausea [Unknown]
  - Fatigue [Unknown]
  - Tenosynovitis [Unknown]
  - Sleep disorder due to a general medical condition [Unknown]
  - Urticaria [Recovered/Resolved]
  - Intentional product misuse [Unknown]
  - Drug effect incomplete [Unknown]

NARRATIVE: CASE EVENT DATE: 20170516
